FAERS Safety Report 9797484 (Version 1)
Quarter: 2014Q1

REPORT INFORMATION
  Report Type: Spontaneous
  Country: RU (occurrence: RU)
  Receive Date: 20140106
  Receipt Date: 20140106
  Transmission Date: 20141002
  Serious: Yes (Hospitalization)
  Sender: FDA-Public Use
  Company Number: PHHY2013RU151960

PATIENT
  Age: 63 Year
  Sex: Male

DRUGS (3)
  1. GLIVEC [Suspect]
     Route: 048
  2. SPASGAN [Concomitant]
  3. PHEZAM [Concomitant]

REACTIONS (2)
  - Renal cyst [Not Recovered/Not Resolved]
  - Pyelonephritis [Not Recovered/Not Resolved]
